FAERS Safety Report 6246590-8 (Version None)
Quarter: 2009Q2

REPORT INFORMATION
  Report Type: 
  Country: None (occurrence: None)
  Receive Date: 20090626
  Receipt Date: 20090617
  Transmission Date: 20091009
  Serious: Yes (Other)
  Sender: FDA-Public Use
  Company Number: CA-PFIZER INC-2008090733

PATIENT
  Age: 68 Year

DRUGS (20)
  1. SUNITINIB MALATE [Suspect]
     Indication: PROSTATE CANCER
     Route: 048
     Dates: start: 20080517
  2. *PEMETREXED [Suspect]
     Indication: PROSTATE CANCER
     Route: 042
     Dates: start: 20080516
  3. CARBOPLATIN [Suspect]
     Indication: PROSTATE CANCER
     Route: 042
     Dates: start: 20080516
  4. FOLIC ACID [Concomitant]
     Dosage: 0.4 MG, 1X/DAY
     Dates: start: 20080514
  5. LEVOTHYROXINE SODIUM [Concomitant]
     Indication: HYPOTHYROIDISM
     Dosage: 0.1 MG, 1X/DAY
     Dates: start: 20060101
  6. PANTOPRAZOLE SODIUM [Concomitant]
     Indication: DYSPEPSIA
     Dosage: 40 MG, 1X/DAY
     Dates: start: 20040101
  7. METOPROLOL SUCCINATE [Concomitant]
     Indication: ARRHYTHMIA PROPHYLAXIS
     Dosage: 50 MG, 1X/DAY
     Dates: start: 20060101
  8. CALCIUM [Concomitant]
     Indication: SUPPLEMENTATION THERAPY
     Dates: start: 20051216
  9. VITAMIN D [Concomitant]
     Indication: SUPPLEMENTATION THERAPY
     Dates: start: 20051216
  10. ASCORBIC ACID [Concomitant]
     Indication: SUPPLEMENTATION THERAPY
     Dosage: UNK
     Dates: start: 20070902
  11. LOMOTIL [Concomitant]
     Indication: DIARRHOEA
     Dosage: 2.5 MG, AS NEEDED
     Dates: start: 20080613, end: 20080706
  12. VITAMIN B-12 [Concomitant]
     Dosage: 1000 UG, UNK
     Dates: start: 20080711, end: 20080711
  13. DEXAMETHASONE [Concomitant]
     Indication: RASH
     Dosage: 4 MG, 2X/DAY
     Dates: start: 20080710, end: 20080712
  14. ZOFRAN [Concomitant]
     Indication: NAUSEA
     Dosage: 8 MG, 2X/DAY
     Dates: start: 20080711, end: 20080714
  15. ASPIRIN [Concomitant]
     Indication: ARRHYTHMIA PROPHYLAXIS
     Dosage: 75 MG, 1X/DAY
     Route: 048
     Dates: start: 20080519
  16. LEUPRORELIN ACETATE [Concomitant]
     Indication: PROSTATE CANCER
     Dosage: 30 MG, CYCLIC
     Dates: start: 20050815
  17. LIPOIC ACID [Concomitant]
     Indication: SUPPLEMENTATION THERAPY
     Dosage: UNK
     Dates: start: 20070901
  18. MICROGENICS PROBIOTIC 8 [Concomitant]
     Indication: ROUTINE HEALTH MAINTENANCE
     Dosage: UNK
     Dates: start: 20080513
  19. SOY LECITHIN/WHEY PROTEINS [Concomitant]
     Indication: MEDICAL DIET
     Dosage: UNK
     Dates: start: 20080101
  20. LORAZEPAM [Concomitant]
     Indication: INSOMNIA
     Dosage: 1 MG, AS NEEDED
     Dates: start: 20051201

REACTIONS (1)
  - TRANSIENT ISCHAEMIC ATTACK [None]
